FAERS Safety Report 15120193 (Version 1)
Quarter: 2018Q3

REPORT INFORMATION
  Report Type: Report from Study
  Country: CA (occurrence: CA)
  Receive Date: 20180709
  Receipt Date: 20180709
  Transmission Date: 20181010
  Serious: Yes (Other)
  Sender: FDA-Public Use
  Company Number: CA-GLAXOSMITHKLINE-CA2018GSK083362

PATIENT
  Age: 52 Year
  Sex: Male

DRUGS (3)
  1. SALBUTAMOL SULPHATE [Suspect]
     Active Substance: ALBUTEROL SULFATE
     Indication: PRODUCT USED FOR UNKNOWN INDICATION
     Dosage: UNK UNK, PRN
  2. XOLAIR [Suspect]
     Active Substance: OMALIZUMAB
     Indication: PRODUCT USED FOR UNKNOWN INDICATION
     Dosage: UNK
     Dates: start: 2014, end: 201409
  3. PREDNISONE. [Suspect]
     Active Substance: PREDNISONE
     Indication: PRODUCT USED FOR UNKNOWN INDICATION
     Dosage: UNK

REACTIONS (10)
  - Blood glucose increased [Unknown]
  - Arthralgia [Unknown]
  - Impaired quality of life [Unknown]
  - Diabetes mellitus [Unknown]
  - Myalgia [Unknown]
  - Pain [Unknown]
  - Back pain [Unknown]
  - Asthenia [Unknown]
  - Asthma [Unknown]
  - Eosinophilia [Unknown]

NARRATIVE: CASE EVENT DATE: 201409
